FAERS Safety Report 15038311 (Version 1)
Quarter: 2018Q2

REPORT INFORMATION
  Report Type: Spontaneous
  Country: CH (occurrence: CH)
  Receive Date: 20180620
  Receipt Date: 20180620
  Transmission Date: 20180711
  Serious: Yes (Hospitalization)
  Sender: FDA-Public Use
  Company Number: CH-BAYER-2018-112644

PATIENT
  Age: 60 Year
  Sex: Female

DRUGS (5)
  1. ASPIRIN. [Suspect]
     Active Substance: ASPIRIN
     Indication: HEADACHE
  2. TRAMADOL. [Concomitant]
     Active Substance: TRAMADOL
  3. IBUPROFEN BAYER [Suspect]
     Active Substance: IBUPROFEN
     Indication: HEADACHE
  4. DICLOFENAC [Concomitant]
     Active Substance: DICLOFENAC
  5. PARACETAMOL [Concomitant]
     Active Substance: ACETAMINOPHEN

REACTIONS (4)
  - Medication overuse headache [None]
  - Drug ineffective [None]
  - Drug withdrawal maintenance therapy [None]
  - Migraine [None]
